FAERS Safety Report 6013341-1 (Version None)
Quarter: 2008Q4

REPORT INFORMATION
  Report Type: 
  Country: None (occurrence: None)
  Receive Date: 20081219
  Receipt Date: 20081211
  Transmission Date: 20090506
  Serious: Yes (Hospitalization, Other)
  Sender: FDA-Public Use
  Company Number: US-NOVOPROD-281051

PATIENT
  Sex: Female

DRUGS (6)
  1. LEVEMIR [Suspect]
     Indication: INSULIN-REQUIRING TYPE 2 DIABETES MELLITUS
     Route: 058
     Dates: start: 20080101
  2. COREG [Concomitant]
     Indication: HYPERTENSION
  3. EFFEXOR [Concomitant]
     Indication: DEPRESSION
  4. CLONOPIN [Concomitant]
     Indication: ANXIETY
  5. ATIVAN [Concomitant]
     Indication: ANXIETY
     Dosage: UNK, PRN
  6. TOPAMAX [Concomitant]
     Indication: CONVULSION

REACTIONS (3)
  - AMNESIA [None]
  - GRAND MAL CONVULSION [None]
  - LOSS OF CONSCIOUSNESS [None]
